FAERS Safety Report 5270183-2 (Version None)
Quarter: 2007Q1

REPORT INFORMATION
  Report Type: 
  Country: None (occurrence: None)
  Receive Date: 20070314
  Receipt Date: 20070302
  Transmission Date: 20070707
  Serious: Yes (Other)
  Sender: FDA-Public Use
  Company Number: 2007SP004123

PATIENT
  Age: 50 Year
  Sex: Male

DRUGS (1)
  1. TEMODAL [Suspect]
     Indication: GLIOBLASTOMA MULTIFORME
     Dosage: ; PO
     Route: 048
     Dates: start: 20070112

REACTIONS (1)
  - HEPATIC FUNCTION ABNORMAL [None]
